FAERS Safety Report 18048527 (Version 2)
Quarter: 2020Q3

REPORT INFORMATION
  Report Type: Report from Study
  Country: CO (occurrence: CO)
  Receive Date: 20200721
  Receipt Date: 20200907
  Transmission Date: 20201103
  Serious: Yes (Other)
  Sender: FDA-Public Use
  Company Number: NVSC2020CO203551

PATIENT
  Age: 67 Year
  Sex: Female
  Weight: 47 kg

DRUGS (2)
  1. FULVESTRANT. [Suspect]
     Active Substance: FULVESTRANT
     Indication: BREAST CANCER METASTATIC
     Dosage: UNK, QMO
     Route: 030
     Dates: start: 202001
  2. KISQALI [Suspect]
     Active Substance: RIBOCICLIB
     Indication: BREAST CANCER
     Dosage: 600 MG, QD (600 MG FROM MONDAY TO FRIDAY AND 400 MG SATURDAY AND SUNDAY)
     Route: 048
     Dates: start: 202004

REACTIONS (10)
  - Gait disturbance [Unknown]
  - Haemoglobin increased [Unknown]
  - Bone disorder [Unknown]
  - Inflammation [Recovered/Resolved]
  - Haemoglobin decreased [Recovering/Resolving]
  - Skin discolouration [Unknown]
  - Off label use [Unknown]
  - Peripheral swelling [Unknown]
  - Thrombosis [Unknown]
  - Erythema [Unknown]

NARRATIVE: CASE EVENT DATE: 20200515
